FAERS Safety Report 22104801 (Version 2)
Quarter: 2023Q2

REPORT INFORMATION
  Report Type: Spontaneous
  Country: FR (occurrence: FR)
  Receive Date: 20230316
  Receipt Date: 20230421
  Transmission Date: 20230722
  Serious: Yes (Other)
  Sender: FDA-Public Use
  Company Number: FR-TEVA-2023-FR-2865901

PATIENT
  Age: 56 Year
  Sex: Male

DRUGS (12)
  1. CLOZAPINE [Suspect]
     Active Substance: CLOZAPINE
     Indication: Schizophrenia
     Dosage: 350 MILLIGRAM DAILY;
     Route: 065
     Dates: start: 2018
  2. QUETIAPINE [Suspect]
     Active Substance: QUETIAPINE
     Indication: Schizophrenia
     Dosage: 800 MILLIGRAM DAILY;
     Route: 065
     Dates: start: 2017, end: 2018
  3. PALIPERIDONE [Suspect]
     Active Substance: PALIPERIDONE
     Indication: Schizophrenia
     Route: 065
     Dates: start: 2010, end: 2018
  4. RISPERIDONE [Suspect]
     Active Substance: RISPERIDONE
     Indication: Schizophrenia
     Dosage: 8 MILLIGRAM DAILY;
     Route: 048
     Dates: start: 2010, end: 2018
  5. TIAPRIDE [Suspect]
     Active Substance: TIAPRIDE
     Indication: Schizophrenia
     Dosage: 200 MILLIGRAM DAILY;
     Route: 065
     Dates: start: 2010, end: 2012
  6. HALOPERIDOL [Suspect]
     Active Substance: HALOPERIDOL
     Indication: Schizophrenia
     Dosage: 20 MILLIGRAM DAILY;
     Route: 065
     Dates: start: 2012
  7. VALPROIC ACID [Suspect]
     Active Substance: VALPROIC ACID
     Indication: Schizophrenia
     Dosage: VARIABLE DOSAGE BETWEEN 750 MG AND 1000MG ONCE A DAY.
     Route: 065
     Dates: start: 2010
  8. LEVOMEPROMAZINE [Suspect]
     Active Substance: LEVOMEPROMAZINE
     Indication: Schizophrenia
     Dosage: 150 MILLIGRAM DAILY;
     Route: 065
     Dates: start: 2010
  9. LOXAPINE [Suspect]
     Active Substance: LOXAPINE
     Indication: Schizophrenia
     Dosage: 300 MILLIGRAM DAILY;
     Route: 065
     Dates: start: 2012, end: 2018
  10. ZUCLOPENTHIXOL [Suspect]
     Active Substance: ZUCLOPENTHIXOL
     Indication: Schizophrenia
     Dosage: 200 MILLIGRAM DAILY;
     Route: 065
     Dates: start: 2010, end: 2017
  11. CLORAZEPATE DIPOTASSIUM [Concomitant]
     Active Substance: CLORAZEPATE DIPOTASSIUM
     Indication: Anxiety
     Route: 065
  12. LORMETAZEPAM [Concomitant]
     Active Substance: LORMETAZEPAM
     Indication: Anxiety
     Route: 065

REACTIONS (5)
  - Dilated cardiomyopathy [Recovering/Resolving]
  - Agranulocytosis [Unknown]
  - Left ventricular dysfunction [Recovering/Resolving]
  - Stroke volume decreased [Recovering/Resolving]
  - Drug ineffective [Unknown]
